FAERS Safety Report 4774749-5 (Version None)
Quarter: 2005Q3

REPORT INFORMATION
  Report Type: 
  Country: None (occurrence: None)
  Receive Date: 20050921
  Receipt Date: 20050913
  Transmission Date: 20060218
  Serious: Yes (Other)
  Sender: FDA-Public Use
  Company Number: A01200505835

PATIENT
  Age: 71 Year
  Sex: Male

DRUGS (2)
  1. LITHIUM [Suspect]
     Route: 065
  2. DOTHIEPIN HYDROCHLORIDE [Concomitant]
     Route: 065

REACTIONS (1)
  - MYOCARDIAL INFARCTION [None]
